FAERS Safety Report 22969703 (Version 5)
Quarter: 2024Q4

REPORT INFORMATION
  Report Type: Report from Study
  Country: US (occurrence: US)
  Receive Date: 20230922
  Receipt Date: 20241216
  Transmission Date: 20250114
  Serious: Yes (Hospitalization, Other)
  Sender: TAKEDA
  Company Number: US-TAKEDA-2023TUS091484

PATIENT
  Age: 12 Year
  Sex: Male
  Weight: 37 kg

DRUGS (12)
  1. TEDUGLUTIDE [Suspect]
     Active Substance: TEDUGLUTIDE
     Indication: Short-bowel syndrome
     Dosage: 1.8 MILLIGRAM, QD
     Dates: start: 20230602, end: 20230703
  2. TEDUGLUTIDE [Suspect]
     Active Substance: TEDUGLUTIDE
  3. TEDUGLUTIDE [Suspect]
     Active Substance: TEDUGLUTIDE
  4. TEDUGLUTIDE [Suspect]
     Active Substance: TEDUGLUTIDE
  5. ALCOHOL [Concomitant]
     Active Substance: ALCOHOL
     Indication: Device related infection
     Dosage: 0.8 MILLILITER
  6. SULFAMETHOXAZOLE AND TRIMETHOPRIM [Concomitant]
     Active Substance: SULFAMETHOXAZOLE\TRIMETHOPRIM
     Indication: Gastrointestinal microorganism overgrowth
     Dosage: 5 MILLILITER, BID
     Dates: start: 20221102
  7. SULFAMETHOXAZOLE AND TRIMETHOPRIM [Concomitant]
     Active Substance: SULFAMETHOXAZOLE\TRIMETHOPRIM
     Dosage: 200 MILLIGRAM, BID
     Dates: start: 20230330
  8. CHOLECALCIFEROL [Concomitant]
     Active Substance: CHOLECALCIFEROL
     Dosage: 1250 MICROGRAM
  9. LOPERAMIDE [Concomitant]
     Active Substance: LOPERAMIDE
     Dosage: 2 MILLIGRAM, TID
     Dates: start: 20230320
  10. MESALAMINE [Concomitant]
     Active Substance: MESALAMINE
     Indication: Anastomotic ulcer
     Dosage: 250 MILLIGRAM, QID
     Dates: start: 20230706
  11. METRONIDAZOLE [Concomitant]
     Active Substance: METRONIDAZOLE
     Dosage: 250 MILLIGRAM, BID
     Dates: start: 20230330
  12. OMEPRAZOLE [Concomitant]
     Active Substance: OMEPRAZOLE
     Dosage: 40 MILLIGRAM, QD
     Dates: start: 20230706

REACTIONS (2)
  - Anastomotic ulcer haemorrhage [Not Recovered/Not Resolved]
  - Hernia repair [Recovered/Resolved]

NARRATIVE: CASE EVENT DATE: 20230602
